FAERS Safety Report 23554100 (Version 1)
Quarter: 2024Q1

REPORT INFORMATION
  Report Type: Spontaneous
  Country: US (occurrence: None)
  Receive Date: 20240222
  Receipt Date: 20240222
  Transmission Date: 20240410
  Serious: No
  Sender: FDA-Public Use
  Company Number: None

PATIENT
  Age: 66 Year
  Sex: Female
  Weight: 61.3 kg

DRUGS (2)
  1. CARBOPLATIN [Suspect]
     Active Substance: CARBOPLATIN
     Dates: end: 20240125
  2. TAXOL [Suspect]
     Active Substance: PACLITAXEL
     Dates: end: 20231228

REACTIONS (4)
  - Haemoglobin decreased [None]
  - Platelet count decreased [None]
  - Hyperkalaemia [None]
  - Hypokalaemia [None]

NARRATIVE: CASE EVENT DATE: 20240214
